FAERS Safety Report 8484167-4 (Version None)
Quarter: 2012Q2

REPORT INFORMATION
  Report Type: 
  Country: None (occurrence: None)
  Receive Date: 20120402
  Receipt Date: 20111202
  Transmission Date: 20120825
  Serious: Yes (Hospitalization)
  Sender: FDA-Public Use
  Company Number: A-NJ2011-56867

PATIENT
  Age: 71 Year
  Sex: Female

DRUGS (4)
  1. CALCIUM CHANNEL BLOCKERS [Concomitant]
  2. TRACLEER [Suspect]
     Indication: PULMONARY ARTERIAL HYPERTENSION
     Dosage: ORAL
     Route: 048
     Dates: start: 20060309
  3. VENTAVIS [Suspect]
     Indication: PULMONARY ARTERIAL HYPERTENSION
     Dosage: RESPIRATORY
     Route: 055
     Dates: start: 20060831
  4. REVATIO [Concomitant]

REACTIONS (4)
  - DYSPNOEA [None]
  - CARDIAC FAILURE CONGESTIVE [None]
  - COUGH [None]
  - FLUID RETENTION [None]
